FAERS Safety Report 4421514-4 (Version None)
Quarter: 2004Q3

REPORT INFORMATION
  Report Type: 
  Country: None (occurrence: None)
  Receive Date: 20040804
  Receipt Date: 20040730
  Transmission Date: 20050211
  Serious: Yes (Other)
  Sender: FDA-Public Use
  Company Number: KII-2004-0012676

PATIENT
  Age: 46 Year
  Sex: Male

DRUGS (4)
  1. OXYCODONE HYDROCHLORIDE (SIMILAR TO 20-553) (OXYCODONE HYDROCHLORIDE) [Suspect]
     Indication: PAIN
  2. FENTANYL [Suspect]
     Indication: PAIN
     Dosage: SEE TEXT,TRANSDERMAL
     Route: 062
  3. SSRI ( ) [Suspect]
  4. BENZODIAZEPINE DERIVATIVES () [Suspect]

REACTIONS (5)
  - MEDICATION ERROR [None]
  - OVERDOSE [None]
  - OXYGEN SATURATION DECREASED [None]
  - SOMNOLENCE [None]
  - SYNCOPE [None]
